FAERS Safety Report 13514625 (Version 2)
Quarter: 2017Q3

REPORT INFORMATION
  Report Type: Spontaneous
  Country: SG (occurrence: SG)
  Receive Date: 20170504
  Receipt Date: 20170712
  Transmission Date: 20171127
  Serious: Yes (Disabling)
  Sender: FDA-Public Use
  Company Number: PHHY2017SG064019

PATIENT
  Age: 47 Year
  Sex: Male

DRUGS (1)
  1. EXFORGE HCT [Suspect]
     Active Substance: AMLODIPINE BESYLATE\HYDROCHLOROTHIAZIDE\VALSARTAN
     Indication: HYPERTENSION
     Route: 065
     Dates: start: 20170321, end: 20170417

REACTIONS (6)
  - Alanine aminotransferase increased [Unknown]
  - Polyuria [Unknown]
  - Aspartate aminotransferase increased [Unknown]
  - Diabetes mellitus [Unknown]
  - Dry mouth [Unknown]
  - Gamma-glutamyltransferase increased [Unknown]

NARRATIVE: CASE EVENT DATE: 20170422
